FAERS Safety Report 18280462 (Version 1)
Quarter: 2020Q3

REPORT INFORMATION
  Report Type: Spontaneous
  Country: GB (occurrence: GB)
  Receive Date: 20200918
  Receipt Date: 20200918
  Transmission Date: 20201103
  Serious: Yes (Other)
  Sender: FDA-Public Use
  Company Number: GB-AUROBINDO-AUR-APL-2020-048393

PATIENT
  Age: 1 Year
  Sex: Male

DRUGS (1)
  1. MELPHALAN INJECTION [Suspect]
     Active Substance: MELPHALAN
     Indication: CONGENITAL RETINOBLASTOMA
     Dosage: 30 MICROGRAM THREE WEEKLY

REACTIONS (3)
  - Product use issue [Unknown]
  - Cystoid macular oedema [Recovered/Resolved]
  - Product use in unapproved indication [Unknown]
